FAERS Safety Report 9432572 (Version 1)
Quarter: 2013Q3

REPORT INFORMATION
  Report Type: Spontaneous
  Country: US (occurrence: US)
  Receive Date: 20130731
  Receipt Date: 20130731
  Transmission Date: 20140515
  Serious: No
  Sender: FDA-Public Use
  Company Number: US-GLAXOSMITHKLINE-A1016581A

PATIENT
  Age: 63 Year
  Sex: Male

DRUGS (2)
  1. TRIAMTERENE AND HYDROCHLOROTHIAZIDE [Suspect]
     Indication: PRODUCT USED FOR UNKNOWN INDICATION
     Route: 065
  2. UNSPECIFIED MEDICATION [Suspect]
     Indication: FRAGILE X SYNDROME
     Route: 065

REACTIONS (1)
  - Drug ineffective [Unknown]
